FAERS Safety Report 5116607-2 (Version None)
Quarter: 2006Q3

REPORT INFORMATION
  Report Type: 
  Country: None (occurrence: None)
  Receive Date: 20060928
  Receipt Date: 20060919
  Transmission Date: 20061208
  Serious: Yes (Hospitalization)
  Sender: FDA-Public Use
  Company Number: SE-NOVOPROD-257122

PATIENT
  Age: 22 Year
  Sex: Female

DRUGS (1)
  1. INSULATARD FLEXPEN [Suspect]
     Indication: DIABETES MELLITUS
     Dosage: 1250 IU, UNK
     Route: 058

REACTIONS (2)
  - BLOOD GLUCOSE DECREASED [None]
  - SUICIDE ATTEMPT [None]
